FAERS Safety Report 24242861 (Version 1)
Quarter: 2024Q3

REPORT INFORMATION
  Report Type: Spontaneous
  Country: US (occurrence: US)
  Receive Date: 20240823
  Receipt Date: 20240823
  Transmission Date: 20241016
  Serious: Yes (Hospitalization)
  Sender: RANBAXY
  Company Number: US-SUN PHARMACEUTICAL INDUSTRIES LTD-2024R1-464456

PATIENT
  Age: 54 Year
  Sex: Female
  Weight: 44.2 kg

DRUGS (3)
  1. CALCITRIOL [Suspect]
     Active Substance: CALCITRIOL
     Indication: End stage renal disease
     Route: 065
  2. CINACALCET [Suspect]
     Active Substance: CINACALCET
     Indication: End stage renal disease
     Dosage: 30 MILLIGRAM
     Route: 065
  3. DARBEPOETIN ALFA [Suspect]
     Active Substance: DARBEPOETIN ALFA
     Indication: Anaemia
     Route: 065

REACTIONS (3)
  - Hypoglycaemia [Unknown]
  - Oedema [Unknown]
  - Constipation [Unknown]
